FAERS Safety Report 9041045 (Version 1)
Quarter: 2013Q1

REPORT INFORMATION
  Report Type: Spontaneous
  Country: US (occurrence: None)
  Receive Date: 20130124
  Receipt Date: 20130124
  Transmission Date: 20140127
  Serious: Yes (Life-Threatening, Hospitalization)
  Sender: FDA-Public Use
  Company Number: None

PATIENT
  Age: 53 Year
  Sex: Female
  Weight: 113.4 kg

DRUGS (1)
  1. CELEBREX, 200 MG, PHARMACIA/PFIZER [Suspect]
     Indication: OSTEOARTHRITIS
     Dosage: 1-200MG CAPSULE  1X DAILY  SWALLOW
     Dates: start: 20130103

REACTIONS (4)
  - Dyspepsia [None]
  - Abdominal discomfort [None]
  - Chest pain [None]
  - Sensation of heaviness [None]
